FAERS Safety Report 6216127-8 (Version None)
Quarter: 2009Q2

REPORT INFORMATION
  Report Type: 
  Country: None (occurrence: None)
  Receive Date: 20090603
  Receipt Date: 20090603
  Transmission Date: 20091009
  Serious: No
  Sender: FDA-Public Use
  Company Number: None

PATIENT
  Age: 83 Year
  Sex: Male
  Weight: 74.8435 kg

DRUGS (1)
  1. LUPRON DEPOT-3 [Suspect]
     Indication: PROSTATE CANCER
     Dosage: 3 MONTHS 22.5MG INJECTION LEFT ARM; INTRAMUSCULAR
     Route: 030
     Dates: start: 20090203

REACTIONS (1)
  - RASH PRURITIC [None]
